FAERS Safety Report 12663866 (Version 1)
Quarter: 2016Q3

REPORT INFORMATION
  Report Type: Report from Study
  Country: BR (occurrence: BR)
  Receive Date: 20160818
  Receipt Date: 20160818
  Transmission Date: 20161109
  Serious: Yes (Hospitalization, Other)
  Sender: FDA-Public Use
  Company Number: PHHY2016BR112380

PATIENT
  Sex: Female

DRUGS (1)
  1. EXELON PATCH [Suspect]
     Active Substance: RIVASTIGMINE
     Indication: PRODUCT USED FOR UNKNOWN INDICATION
     Route: 062

REACTIONS (8)
  - Pulmonary mass [Unknown]
  - Emphysema [Unknown]
  - Pulmonary arterial pressure increased [Unknown]
  - Memory impairment [Unknown]
  - Anxiety [Unknown]
  - Thrombosis [Unknown]
  - Pulmonary oedema [Unknown]
  - Lung disorder [Unknown]
